FAERS Safety Report 14928924 (Version 1)
Quarter: 2018Q2

REPORT INFORMATION
  Report Type: Report from Study
  Country: ES (occurrence: ES)
  Receive Date: 20180523
  Receipt Date: 20180523
  Transmission Date: 20180711
  Serious: Yes (Hospitalization)
  Sender: FDA-Public Use
  Company Number: ES-EISAI MEDICAL RESEARCH-EC-2018-040087

PATIENT
  Age: 72 Year
  Sex: Female
  Weight: 57 kg

DRUGS (4)
  1. LENVIMA [Suspect]
     Active Substance: LENVATINIB
     Route: 048
     Dates: start: 20170606, end: 20170706
  2. LENVIMA [Suspect]
     Active Substance: LENVATINIB
     Indication: THYROID CANCER
     Route: 048
     Dates: start: 20170215, end: 20170405
  3. LENVIMA [Suspect]
     Active Substance: LENVATINIB
     Route: 048
     Dates: start: 20170511, end: 20170605
  4. LENVIMA [Suspect]
     Active Substance: LENVATINIB
     Route: 048
     Dates: start: 20170406, end: 20170510

REACTIONS (21)
  - Asthenia [Recovered/Resolved]
  - Mucosal inflammation [Recovered/Resolved]
  - Diarrhoea [Recovered/Resolved]
  - Pneumothorax [Recovered/Resolved]
  - Dyspepsia [Recovered/Resolved]
  - Pyrexia [Recovered/Resolved]
  - Staphylococcal bacteraemia [Recovered/Resolved]
  - Epistaxis [Recovered/Resolved]
  - Dry eye [Recovered/Resolved]
  - Oedema peripheral [Recovered/Resolved]
  - Malnutrition [Recovered/Resolved]
  - Endophthalmitis [Recovered/Resolved]
  - Acute kidney injury [Recovered/Resolved]
  - Stomatitis [Recovered/Resolved]
  - Nausea [Recovered/Resolved]
  - Hypertensive crisis [Recovered/Resolved]
  - Decreased appetite [Recovered/Resolved]
  - Bicytopenia [Recovered/Resolved]
  - Microalbuminuria [Recovered/Resolved]
  - Abdominal pain [Recovered/Resolved]
  - Vomiting [Recovered/Resolved]

NARRATIVE: CASE EVENT DATE: 20170406
